FAERS Safety Report 11663679 (Version 1)
Quarter: 2015Q4

REPORT INFORMATION
  Report Type: Spontaneous
  Country: US (occurrence: None)
  Receive Date: 20151026
  Receipt Date: 20151026
  Transmission Date: 20160304
  Serious: Yes (Life-Threatening, Hospitalization)
  Sender: FDA-Public Use
  Company Number: None

PATIENT
  Age: 46 Year
  Sex: Male
  Weight: 106.6 kg

DRUGS (4)
  1. FISH OIL [Concomitant]
     Active Substance: FISH OIL
  2. IBUPROFEN. [Concomitant]
     Active Substance: IBUPROFEN
  3. VYTORIN [Concomitant]
     Active Substance: EZETIMIBE\SIMVASTATIN
  4. CIPROFLOXACIN. [Suspect]
     Active Substance: CIPROFLOXACIN
     Indication: DIVERTICULITIS
     Dosage: TAKEN BY MOUTH
     Dates: start: 20150413, end: 20151015

REACTIONS (20)
  - Hypersexuality [None]
  - Aggression [None]
  - Psychotic disorder [None]
  - Hand deformity [None]
  - Rash erythematous [None]
  - Dreamy state [None]
  - Dissociation [None]
  - Adverse drug reaction [None]
  - Transient global amnesia [None]
  - Narcissistic personality disorder [None]
  - Drooling [None]
  - Salivary hypersecretion [None]
  - Gait disturbance [None]
  - Feeling abnormal [None]
  - Personality change [None]
  - Depression [None]
  - Mania [None]
  - Tongue movement disturbance [None]
  - Speech disorder [None]
  - Excessive masturbation [None]

NARRATIVE: CASE EVENT DATE: 20150418
